FAERS Safety Report 20849997 (Version 15)
Quarter: 2025Q1

REPORT INFORMATION
  Report Type: Spontaneous
  Country: US (occurrence: US)
  Receive Date: 20220519
  Receipt Date: 20250108
  Transmission Date: 20250408
  Serious: Yes (Hospitalization)
  Sender: PFIZER
  Company Number: US-PFIZER INC-202200708801

PATIENT
  Age: 50 Year
  Sex: Female

DRUGS (9)
  1. IBRANCE [Suspect]
     Active Substance: PALBOCICLIB
     Dates: start: 20220106, end: 2022
  2. IBRANCE [Suspect]
     Active Substance: PALBOCICLIB
     Route: 048
     Dates: start: 20220106
  3. IBRANCE [Suspect]
     Active Substance: PALBOCICLIB
     Route: 048
     Dates: start: 20220602
  4. IBRANCE [Suspect]
     Active Substance: PALBOCICLIB
  5. IBRANCE [Suspect]
     Active Substance: PALBOCICLIB
     Dosage: TAKE 1 TAB DAILY
     Route: 048
  6. IBRANCE [Suspect]
     Active Substance: PALBOCICLIB
     Route: 048
  7. FASLODEX [Concomitant]
     Active Substance: FULVESTRANT
  8. CALCIUM CITRATE [Concomitant]
     Active Substance: CALCIUM CITRATE
  9. VITAMIN D3 [Concomitant]
     Active Substance: CHOLECALCIFEROL

REACTIONS (34)
  - Dry skin [Unknown]
  - Inflammation [Unknown]
  - Cyst [Unknown]
  - Anaemia [Unknown]
  - Hysterectomy [Unknown]
  - White blood cell count decreased [Unknown]
  - Skin sensitisation [Recovering/Resolving]
  - Dry mouth [Recovering/Resolving]
  - Gastrooesophageal reflux disease [Unknown]
  - Fatigue [Unknown]
  - Brain fog [Unknown]
  - Speech disorder [Unknown]
  - Dyspnoea [Not Recovered/Not Resolved]
  - Stomatitis [Unknown]
  - Hot flush [Recovering/Resolving]
  - Sciatica [Recovering/Resolving]
  - Balance disorder [Not Recovered/Not Resolved]
  - Neutrophil count decreased [Not Recovered/Not Resolved]
  - Nausea [Unknown]
  - Diarrhoea [Recovering/Resolving]
  - Full blood count decreased [Unknown]
  - Dizziness [Recovering/Resolving]
  - Pain in extremity [Recovering/Resolving]
  - Abdominal discomfort [Unknown]
  - Hypotension [Unknown]
  - Headache [Unknown]
  - Musculoskeletal stiffness [Unknown]
  - Myalgia [Unknown]
  - Insomnia [Unknown]
  - Night sweats [Unknown]
  - Abdominal pain upper [Unknown]
  - Pain [Unknown]
  - Product dose omission issue [Unknown]
  - Off label use [Unknown]

NARRATIVE: CASE EVENT DATE: 20220101
